FAERS Safety Report 7292995-6 (Version None)
Quarter: 2011Q1

REPORT INFORMATION
  Report Type: 
  Country: None (occurrence: None)
  Receive Date: 20110215
  Receipt Date: 20110203
  Transmission Date: 20110831
  Serious: Yes (Other)
  Sender: FDA-Public Use
  Company Number: US-JNJFOC-20110203110

PATIENT
  Sex: Female

DRUGS (1)
  1. NUCYNTA [Suspect]
     Indication: HEADACHE
     Route: 048

REACTIONS (1)
  - DEPRESSION [None]
